FAERS Safety Report 5146503-6 (Version None)
Quarter: 2006Q4

REPORT INFORMATION
  Report Type: 
  Country: None (occurrence: None)
  Receive Date: 20061108
  Receipt Date: 20061030
  Transmission Date: 20070319
  Serious: Yes (Death, Hospitalization)
  Sender: FDA-Public Use
  Company Number: US-MERCK-0611USA01351

PATIENT
  Age: 35 Year
  Sex: Male

DRUGS (4)
  1. STROMECTOL [Suspect]
     Indication: STRONGYLOIDIASIS
     Route: 048
  2. STROMECTOL [Suspect]
     Route: 048
  3. CYCLOPHOSPHAMIDE AND DEXAMETHASONE AND DOXORUBICIN AND VINCRISTINE SUL [Concomitant]
     Indication: ADULT T-CELL LYMPHOMA/LEUKAEMIA
     Route: 065
  4. ALBENDAZOLE [Concomitant]
     Indication: STRONGYLOIDIASIS
     Route: 065

REACTIONS (13)
  - BACTERIAL SEPSIS [None]
  - BRONCHOALVEOLAR LAVAGE ABNORMAL [None]
  - COUGH [None]
  - DRUG INEFFECTIVE [None]
  - DYSPNOEA [None]
  - ENTEROCOCCAL INFECTION [None]
  - MULTI-ORGAN FAILURE [None]
  - PERSISTENT GENERALISED LYMPHADENOPATHY [None]
  - PYREXIA [None]
  - RESPIRATORY FAILURE [None]
  - STRONGYLOIDIASIS [None]
  - T-CELL LYMPHOMA [None]
  - WEIGHT DECREASED [None]
